FAERS Safety Report 9221624 (Version 1)
Quarter: 2013Q1

REPORT INFORMATION
  Report Type: Spontaneous
  Country: US (occurrence: None)
  Receive Date: 20120831
  Receipt Date: 20120831
  Transmission Date: 20140127
  Serious: No
  Sender: FDA-Public Use
  Company Number: 1000036883

PATIENT
  Age: 60 Year
  Sex: Female

DRUGS (8)
  1. DALIRESP [Suspect]
     Indication: CHRONIC OBSTRUCTIVE PULMONARY DISEASE
     Route: 048
     Dates: start: 20120629, end: 20120705
  2. PERCOCET (OXYCODONE, ACETAMINOPHEN) (OXYCODONE, ACETAMINOPHEN) [Concomitant]
  3. DETROL LA (TOLTERODINE L-TARTRATE) (TOLTERODINE L-TARTRATE) [Concomitant]
  4. POTASSIUM (POTASSIUM) (POTASSIUM) [Concomitant]
  5. NEXIUM (ESOMEPRAZOLE) (ESOMEPRAZOLE) [Concomitant]
  6. TRILIPIX (CHOLINE FENOFIBRATE) (CHOLINE FENOFIBRATE) [Concomitant]
  7. LOSARTAN (LOSARTAN) (LOSARTAN) [Concomitant]
  8. TOPAMAX (TOPIRAMATE) (TOPIRAMATE) [Concomitant]

REACTIONS (3)
  - Memory impairment [None]
  - Abnormal behaviour [None]
  - Insomnia [None]
